FAERS Safety Report 10003353 (Version 1)
Quarter: 2014Q1

REPORT INFORMATION
  Report Type: Spontaneous
  Country: US (occurrence: US)
  Receive Date: 20140312
  Receipt Date: 20140312
  Transmission Date: 20141002
  Serious: No
  Sender: FDA-Public Use
  Company Number: US-ASTRAZENECA-2013SE63673

PATIENT
  Sex: Male

DRUGS (2)
  1. CASODEX [Suspect]
     Dosage: GENERIC
     Route: 048
  2. CASODEX [Suspect]
     Route: 048
     Dates: start: 20130716

REACTIONS (2)
  - Dyspnoea [Unknown]
  - Drug ineffective [Unknown]
